FAERS Safety Report 25802723 (Version 1)
Quarter: 2025Q3

REPORT INFORMATION
  Report Type: Spontaneous
  Country: CA (occurrence: CA)
  Receive Date: 20250915
  Receipt Date: 20250915
  Transmission Date: 20251020
  Serious: Yes (Hospitalization)
  Sender: PFIZER
  Company Number: CA-PFIZER INC-202500180215

PATIENT
  Age: 20 Week
  Sex: Male

DRUGS (3)
  1. RAPAMUNE [Suspect]
     Active Substance: SIROLIMUS
     Dates: start: 20181220
  2. RAPAMUNE [Suspect]
     Active Substance: SIROLIMUS
     Dosage: 0.4 MG, DAILY
     Dates: start: 20190215
  3. RAPAMUNE [Suspect]
     Active Substance: SIROLIMUS

REACTIONS (2)
  - Drug level decreased [Unknown]
  - Off label use [Unknown]
